FAERS Safety Report 6004119-3 (Version None)
Quarter: 2008Q4

REPORT INFORMATION
  Report Type: 
  Country: None (occurrence: None)
  Receive Date: 20081216
  Receipt Date: 20081209
  Transmission Date: 20090506
  Serious: Yes (Other)
  Sender: FDA-Public Use
  Company Number: ES-JNJFOC-20081202407

PATIENT
  Age: 66 Year
  Sex: Female

DRUGS (6)
  1. TAVANIC [Suspect]
     Indication: Q FEVER
     Route: 048
  2. SIMVASTIN [Suspect]
     Indication: HYPERCHOLESTEROLAEMIA
     Route: 048
  3. COZAAR [Concomitant]
     Indication: HYPERTENSION
     Dosage: 1-0-1/2 EVERY DAY
     Route: 048
  4. TORSEMIDE [Concomitant]
     Indication: FLUID RETENTION
     Dosage: 1/2 TO 0-0 EVERY DAY
     Route: 048
  5. COROPRES [Concomitant]
     Indication: HYPERTENSION
     Dosage: 1/4-0-1/4
     Route: 048
  6. PLAVIX [Concomitant]
     Indication: DRUG USE FOR UNKNOWN INDICATION
     Dosage: 0-1-0
     Route: 047

REACTIONS (3)
  - DRUG TOXICITY [None]
  - MYOPATHY [None]
  - TENDONITIS [None]
